FAERS Safety Report 4683885-3 (Version None)
Quarter: 2005Q2

REPORT INFORMATION
  Report Type: 
  Country: None (occurrence: None)
  Receive Date: 20050602
  Receipt Date: 20050321
  Transmission Date: 20051028
  Serious: Yes (Hospitalization)
  Sender: FDA-Public Use
  Company Number: USA050393708

PATIENT
  Age: 32 Year
  Sex: Female

DRUGS (2)
  1. CYMBALTA [Suspect]
     Indication: DEPRESSION
     Dosage: 120 MG DAY
  2. PAXIL [Concomitant]

REACTIONS (7)
  - BLOOD PRESSURE INCREASED [None]
  - GASTRIC DISORDER [None]
  - HEART RATE INCREASED [None]
  - NAUSEA [None]
  - PRESCRIBED OVERDOSE [None]
  - TREMOR [None]
  - VISUAL DISTURBANCE [None]
